FAERS Safety Report 11753711 (Version 1)
Quarter: 2015Q4

REPORT INFORMATION
  Report Type: Spontaneous
  Country: US (occurrence: US)
  Receive Date: 20151119
  Receipt Date: 20151119
  Transmission Date: 20160304
  Serious: Yes (Other)
  Sender: FDA-Public Use
  Company Number: US-ASTRAZENECA-2012SE74501

PATIENT
  Age: 66 Year
  Sex: Female
  Weight: 75.3 kg

DRUGS (5)
  1. CRESTOR [Suspect]
     Active Substance: ROSUVASTATIN CALCIUM
     Indication: BLOOD CHOLESTEROL INCREASED
     Route: 048
     Dates: start: 20090717
  2. CRESTOR [Suspect]
     Active Substance: ROSUVASTATIN CALCIUM
     Indication: BLOOD CHOLESTEROL INCREASED
     Route: 048
     Dates: start: 20130624
  3. METOPROLOL [Concomitant]
     Active Substance: METOPROLOL
     Dates: start: 20081002
  4. NEXIUM [Concomitant]
     Active Substance: ESOMEPRAZOLE MAGNESIUM
     Dates: start: 20090610
  5. CRESTOR [Suspect]
     Active Substance: ROSUVASTATIN CALCIUM
     Indication: BLOOD CHOLESTEROL INCREASED
     Route: 048
     Dates: start: 2006

REACTIONS (12)
  - Coronary artery disease [Unknown]
  - Cardiovascular disorder [Unknown]
  - Type 2 diabetes mellitus [Unknown]
  - Myocardial infarction [Unknown]
  - Cardiac failure congestive [Unknown]
  - Angina pectoris [Unknown]
  - Obesity [Unknown]
  - Hypertension [Unknown]
  - Arrhythmia [Unknown]
  - Blood triglycerides increased [Unknown]
  - Cerebrovascular accident [Unknown]
  - Cardiomyopathy [Unknown]

NARRATIVE: CASE EVENT DATE: 2007
